FAERS Safety Report 17014277 (Version 1)
Quarter: 2019Q4

REPORT INFORMATION
  Report Type: Spontaneous
  Country: US (occurrence: US)
  Receive Date: 20191111
  Receipt Date: 20191111
  Transmission Date: 20200122
  Serious: Yes (Life-Threatening, Hospitalization)
  Sender: FDA-Public Use
  Company Number: US-JNJFOC-20191103050

PATIENT
  Age: 14 Year
  Sex: Male

DRUGS (1)
  1. IBUPROFEN. [Suspect]
     Active Substance: IBUPROFEN
     Indication: PRODUCT USED FOR UNKNOWN INDICATION
     Route: 065

REACTIONS (11)
  - Acute kidney injury [Unknown]
  - Transaminases increased [Unknown]
  - Multiple organ dysfunction syndrome [Unknown]
  - Shock [Unknown]
  - Interleukin level increased [Unknown]
  - Haemophagocytic lymphohistiocytosis [Unknown]
  - Exfoliative rash [Unknown]
  - Pancytopenia [Unknown]
  - Paralysis [Unknown]
  - Serum ferritin increased [Unknown]
  - Lactic acidosis [Unknown]
